FAERS Safety Report 4849404-3 (Version None)
Quarter: 2005Q4

REPORT INFORMATION
  Report Type: 
  Country: None (occurrence: None)
  Receive Date: 20051207
  Receipt Date: 20051124
  Transmission Date: 20060501
  Serious: Yes (Hospitalization)
  Sender: FDA-Public Use
  Company Number: 2005152290

PATIENT
  Age: 36 Year
  Sex: Female

DRUGS (1)
  1. AZULFIDINE EN-TABS [Suspect]
     Indication: RHEUMATOID ARTHRITIS
     Dosage: 500 MG (500  MG, 1 IN 1 D), ORAL
     Route: 048
     Dates: start: 20050917, end: 20051008

REACTIONS (6)
  - BONE MARROW FAILURE [None]
  - GENERALISED ERYTHEMA [None]
  - HEPATIC FUNCTION ABNORMAL [None]
  - MALAISE [None]
  - PYREXIA [None]
  - STEVENS-JOHNSON SYNDROME [None]
